FAERS Safety Report 13366244 (Version 1)
Quarter: 2017Q1

REPORT INFORMATION
  Report Type: Spontaneous
  Country: DE (occurrence: DE)
  Receive Date: 20170323
  Receipt Date: 20170323
  Transmission Date: 20170429
  Serious: Yes (Other)
  Sender: FDA-Public Use
  Company Number: DE-TEVA-750511GER

PATIENT
  Age: 75 Year
  Sex: Female

DRUGS (1)
  1. TAMOXIFEN-RATIOPHARM 20 MG TABLETTEN [Suspect]
     Active Substance: TAMOXIFEN
     Indication: BREAST CANCER
     Dosage: 20 MILLIGRAM DAILY;
     Route: 048
     Dates: start: 201607

REACTIONS (1)
  - Retinal tear [Unknown]
